FAERS Safety Report 6483177-6 (Version None)
Quarter: 2009Q4

REPORT INFORMATION
  Report Type: 
  Country: None (occurrence: None)
  Receive Date: 20091209
  Receipt Date: 20091130
  Transmission Date: 20100525
  Serious: Yes (Other)
  Sender: FDA-Public Use
  Company Number: US-AMGEN-QUU365296

PATIENT
  Sex: Female
  Weight: 72.2 kg

DRUGS (7)
  1. ENBREL [Suspect]
     Indication: PSORIATIC ARTHROPATHY
     Route: 058
     Dates: start: 20000201
  2. ENBREL [Suspect]
     Indication: PSORIASIS
  3. MULTI-VITAMINS [Concomitant]
  4. ASPIRIN [Concomitant]
  5. FOSAMAX [Concomitant]
  6. LEVOXYL [Concomitant]
  7. CLINDAMYCIN [Concomitant]

REACTIONS (25)
  - ANOSMIA [None]
  - ASTHENIA [None]
  - ATELECTASIS [None]
  - CHOLELITHIASIS [None]
  - COGNITIVE DISORDER [None]
  - CONCUSSION [None]
  - CONSTIPATION [None]
  - DEPRESSION [None]
  - FAECES DISCOLOURED [None]
  - FATIGUE [None]
  - HAEMANGIOMA OF LIVER [None]
  - HAEMORRHOIDS [None]
  - HYPOTHYROIDISM [None]
  - INCREASED TENDENCY TO BRUISE [None]
  - MALAISE [None]
  - MIGRAINE [None]
  - MITRAL VALVE PROLAPSE [None]
  - NEUROPATHY PERIPHERAL [None]
  - OSTEOPOROSIS [None]
  - PANCREATITIS [None]
  - POST CONCUSSION SYNDROME [None]
  - RHEUMATOID ARTHRITIS [None]
  - SPINAL OSTEOARTHRITIS [None]
  - THYROID NEOPLASM [None]
  - TREATMENT NONCOMPLIANCE [None]
